FAERS Safety Report 7246418-3 (Version None)
Quarter: 2011Q1

REPORT INFORMATION
  Report Type: 
  Country: None (occurrence: None)
  Receive Date: 20110126
  Receipt Date: 20110125
  Transmission Date: 20110831
  Serious: Yes (Hospitalization)
  Sender: FDA-Public Use
  Company Number: US-ABBOTT-10P-163-0692507-00

PATIENT
  Sex: Female
  Weight: 63.56 kg

DRUGS (6)
  1. HUMIRA [Suspect]
     Indication: PSORIASIS
     Dates: start: 20100401
  2. LANTUS [Concomitant]
     Indication: DIABETES MELLITUS
  3. CLONIDINE [Concomitant]
     Indication: BLOOD PRESSURE
  4. ACTOS [Concomitant]
     Indication: DIABETES MELLITUS
  5. UNKNOWN VIT [Concomitant]
     Indication: RENAL DISORDER
  6. NIFEDITINE [Concomitant]
     Indication: BLOOD PRESSURE

REACTIONS (3)
  - RENAL FAILURE CHRONIC [None]
  - DYSPNOEA [None]
  - CHEST PAIN [None]
